FAERS Safety Report 8602133-2 (Version None)
Quarter: 2012Q3

REPORT INFORMATION
  Report Type: 
  Country: None (occurrence: None)
  Receive Date: 20120817
  Receipt Date: 20120702
  Transmission Date: 20120928
  Serious: Yes (Hospitalization)
  Sender: FDA-Public Use
  Company Number: PK-NOVOPROD-355654

PATIENT

DRUGS (2)
  1. MIXTARD HUMAN 70/30 [Suspect]
     Indication: GESTATIONAL DIABETES
     Route: 064
  2. METFORMIN HYDROCHLORIDE [Suspect]
     Indication: GESTATIONAL DIABETES
     Route: 064

REACTIONS (2)
  - HYPOGLYCAEMIA NEONATAL [None]
  - MATERNAL EXPOSURE TIMING UNSPECIFIED [None]
